FAERS Safety Report 20595628 (Version 1)
Quarter: 2022Q1

REPORT INFORMATION
  Report Type: Spontaneous
  Country: IR (occurrence: IR)
  Receive Date: 20220315
  Receipt Date: 20220315
  Transmission Date: 20220423
  Serious: Yes (Death)
  Sender: FDA-Public Use
  Company Number: IR-MYLANLABS-2022M1018996

PATIENT
  Age: 12 Year
  Sex: Female

DRUGS (3)
  1. EPIRUBICIN [Suspect]
     Active Substance: EPIRUBICIN
     Indication: Adenocarcinoma gastric
     Dosage: UNK, CYCLE; TWO CYCLES
     Route: 065
  2. CAPECITABINE [Suspect]
     Active Substance: CAPECITABINE
     Indication: Adenocarcinoma gastric
     Dosage: UNK UNK, CYCLE; TWO CYCLES
     Route: 065
  3. OXALIPLATIN [Suspect]
     Active Substance: OXALIPLATIN
     Indication: Adenocarcinoma gastric
     Dosage: UNK UNK, CYCLE; TWO CYCLES
     Route: 065

REACTIONS (1)
  - Therapy non-responder [Fatal]
